FAERS Safety Report 4647044-2 (Version None)
Quarter: 2005Q2

REPORT INFORMATION
  Report Type: 
  Country: None (occurrence: None)
  Receive Date: 20050331
  Receipt Date: 20050127
  Transmission Date: 20051028
  Serious: No
  Sender: FDA-Public Use
  Company Number: 04P-163-0265813-00

PATIENT
  Age: 58 Year
  Sex: Female
  Weight: 90.7194 kg

DRUGS (7)
  1. HUMIRA [Suspect]
     Indication: RHEUMATOID ARTHRITIS
     Dosage: 40 MG, 1 IN 2 WK, SUBCUTANEOUS;  40 MG, 1 IN 2 WK
     Route: 058
     Dates: start: 20030501, end: 20041028
  2. HUMIRA [Suspect]
     Indication: RHEUMATOID ARTHRITIS
     Dosage: 40 MG, 1 IN 2 WK, SUBCUTANEOUS;  40 MG, 1 IN 2 WK
     Route: 058
     Dates: start: 20041129
  3. MELOXICAM [Suspect]
     Indication: OSTEOARTHRITIS
     Dates: start: 20040401, end: 20040501
  4. MELOXICAM [Suspect]
     Indication: OSTEOARTHRITIS
     Dates: start: 20040601, end: 20040601
  5. ROFECOXIB [Suspect]
     Indication: OSTEOARTHRITIS
     Dates: start: 20040702, end: 20040704
  6. RISEDRONATE SODIUM [Concomitant]
  7. PREDNISONE TAB [Concomitant]

REACTIONS (6)
  - ABDOMINAL PAIN [None]
  - DIARRHOEA [None]
  - DYSPEPSIA [None]
  - INFLUENZA LIKE ILLNESS [None]
  - PARANASAL SINUS HYPERSECRETION [None]
  - SOMNOLENCE [None]
